FAERS Safety Report 20086068 (Version 1)
Quarter: 2021Q4

REPORT INFORMATION
  Report Type: Spontaneous
  Country: FR (occurrence: FR)
  Receive Date: 20211118
  Receipt Date: 20211118
  Transmission Date: 20220303
  Serious: Yes (Hospitalization, Congenital Anomaly, Other)
  Sender: FDA-Public Use
  Company Number: FR-ABBVIE-21K-056-4165456-00

PATIENT
  Sex: Male
  Weight: 3.03 kg

DRUGS (5)
  1. VALPROATE SODIUM [Suspect]
     Active Substance: VALPROATE SODIUM
     Indication: Maternal exposure timing unspecified
     Route: 064
  2. ALBUTEROL [Concomitant]
     Active Substance: ALBUTEROL
     Indication: Product used for unknown indication
  3. SEREVENT DISKUS [Concomitant]
     Active Substance: SALMETEROL XINAFOATE
     Indication: Product used for unknown indication
  4. BAMBUTEROL HYDROCHLORIDE [Concomitant]
     Active Substance: BAMBUTEROL HYDROCHLORIDE
     Indication: Product used for unknown indication
  5. PULMICORT TURBUHALER [Concomitant]
     Active Substance: BUDESONIDE
     Indication: Product used for unknown indication

REACTIONS (76)
  - Disability [Unknown]
  - Autism spectrum disorder [Unknown]
  - Epilepsy [Unknown]
  - Petit mal epilepsy [Unknown]
  - Gross motor delay [Unknown]
  - Visual agnosia [Unknown]
  - Neuromyopathy [Unknown]
  - Stereotypy [Unknown]
  - Intellectual disability [Unknown]
  - Dentofacial anomaly [Unknown]
  - Gigantism [Unknown]
  - Congenital foot malformation [Unknown]
  - Autism spectrum disorder [Unknown]
  - Disturbance in attention [Unknown]
  - Inguinal hernia [Unknown]
  - Drooling [Unknown]
  - Learning disorder [Unknown]
  - Balance disorder [Unknown]
  - Dyskinesia [Unknown]
  - Psychomotor skills impaired [Unknown]
  - Disorientation [Unknown]
  - Dyspraxia [Unknown]
  - Dysgraphia [Unknown]
  - Testicular disorder [Unknown]
  - Cognitive disorder [Unknown]
  - Fine motor skill dysfunction [Unknown]
  - Behaviour disorder [Unknown]
  - Impaired reasoning [Unknown]
  - Memory impairment [Unknown]
  - Developmental delay [Unknown]
  - Reading disorder [Not Recovered/Not Resolved]
  - Dysgraphia [Not Recovered/Not Resolved]
  - Selective eating disorder [Unknown]
  - Enuresis [Unknown]
  - Scoliosis [Unknown]
  - Hypotonia [Unknown]
  - Areflexia [Unknown]
  - Hyporeflexia [Unknown]
  - Dysmorphism [Unknown]
  - Joint stiffness [Unknown]
  - Camptodactyly congenital [Unknown]
  - Thyroid mass [Unknown]
  - Speech disorder [Unknown]
  - Deformity [Unknown]
  - Limb malformation [Unknown]
  - Speech sound disorder [Unknown]
  - Language disorder [Unknown]
  - Astigmatism [Unknown]
  - Neonatal infection [Unknown]
  - Pneumonia [Unknown]
  - Gastrooesophageal reflux disease [Unknown]
  - Nasopharyngitis [Unknown]
  - Rhinitis [Unknown]
  - Bronchitis [Unknown]
  - Oropharyngeal pain [Unknown]
  - Tracheobronchitis [Unknown]
  - Sinusitis [Unknown]
  - Overweight [Unknown]
  - Tooth disorder [Unknown]
  - Muscular weakness [Unknown]
  - Pyrexia [Unknown]
  - Pharyngitis [Unknown]
  - Fall [Unknown]
  - Rhinotracheitis [Unknown]
  - Otitis media [Unknown]
  - Upper-airway cough syndrome [Unknown]
  - Laryngitis [Unknown]
  - Tracheitis [Unknown]
  - Ear disorder [Unknown]
  - Nasal discomfort [Unknown]
  - Oropharyngeal discomfort [Unknown]
  - Respiratory disorder [Unknown]
  - Visual impairment [Unknown]
  - Fatigue [Unknown]
  - Muscle disorder [Unknown]
  - Foetal exposure during pregnancy [Unknown]

NARRATIVE: CASE EVENT DATE: 20010101
